FAERS Safety Report 16623130 (Version 2)
Quarter: 2019Q3

REPORT INFORMATION
  Report Type: Spontaneous
  Country: US (occurrence: US)
  Receive Date: 20190723
  Receipt Date: 20190812
  Transmission Date: 20191004
  Serious: Yes (Hospitalization, Other)
  Sender: FDA-Public Use
  Company Number: US-MALLINCKRODT-T201905083

PATIENT
  Sex: Male

DRUGS (8)
  1. AMITIZA [Suspect]
     Active Substance: LUBIPROSTONE
     Indication: IRRITABLE BOWEL SYNDROME
  2. MIRALAX [Concomitant]
     Active Substance: POLYETHYLENE GLYCOL 3350
     Indication: CONSTIPATION
     Dosage: UNK (EVERY NIGHT)
     Route: 065
  3. MIRALAX [Concomitant]
     Active Substance: POLYETHYLENE GLYCOL 3350
     Indication: IRRITABLE BOWEL SYNDROME
  4. ESCITALOPRAM [Concomitant]
     Active Substance: ESCITALOPRAM OXALATE
     Indication: PRODUCT USED FOR UNKNOWN INDICATION
     Dosage: UNK
     Route: 065
  5. METAMUCIL CITRON [Concomitant]
     Indication: CONSTIPATION
     Dosage: UNK
     Route: 065
  6. AMITIZA [Suspect]
     Active Substance: LUBIPROSTONE
     Indication: CONSTIPATION
     Dosage: 24 MICROGRAM, BID
     Route: 065
     Dates: start: 201702
  7. METAMUCIL CITRON [Concomitant]
     Indication: IRRITABLE BOWEL SYNDROME
  8. DULCOLAX BALANCE [Concomitant]
     Active Substance: POLYETHYLENE GLYCOL 3350
     Indication: CONSTIPATION
     Dosage: UNK
     Route: 065

REACTIONS (8)
  - Product use issue [Unknown]
  - Non-cirrhotic portal hypertension [Not Recovered/Not Resolved]
  - Constipation [Not Recovered/Not Resolved]
  - Steatorrhoea [Unknown]
  - Diarrhoea [Not Recovered/Not Resolved]
  - Chest pain [Not Recovered/Not Resolved]
  - Abdominal pain lower [Not Recovered/Not Resolved]
  - Therapeutic product effect incomplete [Unknown]
